FAERS Safety Report 12615623 (Version 3)
Quarter: 2016Q3

REPORT INFORMATION
  Report Type: Spontaneous
  Country: None (occurrence: RU)
  Receive Date: 20160802
  Receipt Date: 20160822
  Transmission Date: 20161109
  Serious: Yes (Other)
  Sender: FDA-Public Use
  Company Number: RU-MERCK KGAA-1055767

PATIENT

DRUGS (1)
  1. NOVOTHYROX [Suspect]
     Active Substance: LEVOTHYROXINE SODIUM

REACTIONS (6)
  - Somnolence [None]
  - Hypertension [None]
  - Swelling [None]
  - Asthenia [None]
  - Blood thyroid stimulating hormone increased [None]
  - Arrhythmia [None]
